FAERS Safety Report 9496422 (Version 2)
Quarter: 2013Q3

REPORT INFORMATION
  Report Type: Spontaneous
  Country: US (occurrence: None)
  Receive Date: 20130829
  Receipt Date: 20130904
  Transmission Date: 20140515
  Serious: Yes (Other)
  Sender: FDA-Public Use
  Company Number: ACO_36704_2013

PATIENT
  Age: 50 Year
  Sex: Female
  Weight: 81.2 kg

DRUGS (6)
  1. AMPYRA (DALFAMPRIDINE) TABLET, 10MG [Suspect]
     Indication: GAIT DISTURBANCE
     Route: 048
     Dates: start: 20130214, end: 20130508
  2. TOPROL (METOPROLOL SUCCINATE) [Concomitant]
  3. ASPIRIN (ACETYLSALICYLIC ACID) [Concomitant]
  4. VITAMIN D (COLECALCIFEROL) CAPSULE [Concomitant]
  5. REBIF (INTERFERON BETA-1A) [Concomitant]
  6. L-LYSINE (LYSINE) [Concomitant]

REACTIONS (3)
  - Herpes zoster [None]
  - Headache [None]
  - Insomnia [None]
